FAERS Safety Report 6279917-1 (Version None)
Quarter: 2009Q3

REPORT INFORMATION
  Report Type: 
  Country: None (occurrence: None)
  Receive Date: 20090723
  Receipt Date: 20090514
  Transmission Date: 20100115
  Serious: No
  Sender: FDA-Public Use
  Company Number: US-AMGEN-KDL347261

PATIENT
  Sex: Female
  Weight: 84 kg

DRUGS (3)
  1. PROCRIT [Suspect]
     Indication: RENAL FAILURE CHRONIC
     Dates: start: 20040101, end: 20090201
  2. LIPITOR [Concomitant]
  3. INSULIN [Concomitant]

REACTIONS (5)
  - FALL [None]
  - HAEMATOCRIT DECREASED [None]
  - HAEMATOMA [None]
  - IMPAIRED HEALING [None]
  - OPEN WOUND [None]
